FAERS Safety Report 21042492 (Version 1)
Quarter: 2022Q3

REPORT INFORMATION
  Report Type: Report from Study
  Country: CA (occurrence: CA)
  Receive Date: 20220705
  Receipt Date: 20220705
  Transmission Date: 20221027
  Serious: Yes (Other)
  Sender: FDA-Public Use
  Company Number: CA-JNJFOC-20220125216

PATIENT
  Age: 74 Year
  Sex: Male
  Weight: 69 kg

DRUGS (1)
  1. REMICADE [Suspect]
     Active Substance: INFLIXIMAB
     Indication: Ankylosing spondylitis
     Dosage: ON 13-JAN-2022, THE PATIENT RECEIVED 67TH INFUSION OF DOSE 500 MG. ON 28-JUN-2022, THE PATIENT RECEI
     Route: 042
     Dates: start: 20090116

REACTIONS (2)
  - Skin cancer [Unknown]
  - Hyperkeratosis [Unknown]

NARRATIVE: CASE EVENT DATE: 20210101
